FAERS Safety Report 10048052 (Version 1)
Quarter: 2014Q1

REPORT INFORMATION
  Report Type: Spontaneous
  Country: DE (occurrence: DE)
  Receive Date: 20140331
  Receipt Date: 20140331
  Transmission Date: 20141002
  Serious: Yes (Other)
  Sender: FDA-Public Use
  Company Number: DE-PFIZER INC-2014086630

PATIENT
  Sex: 0

DRUGS (2)
  1. LYRICA [Suspect]
     Indication: NEURALGIA
     Dosage: 75 MG, AT NIGHT
  2. DULOXETINE [Concomitant]

REACTIONS (1)
  - Atrial fibrillation [Unknown]
